FAERS Safety Report 9675700 (Version 1)
Quarter: 2013Q4

REPORT INFORMATION
  Report Type: Spontaneous
  Country: GB (occurrence: GB)
  Receive Date: 20131107
  Receipt Date: 20131107
  Transmission Date: 20140711
  Serious: Yes (Other)
  Sender: FDA-Public Use
  Company Number: GB-JNJFOC-20131100735

PATIENT
  Age: 68 Year
  Sex: Female
  Weight: 70 kg

DRUGS (6)
  1. HALOPERIDOL [Suspect]
     Indication: CRYING
     Route: 065
     Dates: start: 19760524
  2. HALOPERIDOL [Suspect]
     Indication: EMOTIONAL DISTRESS
     Route: 065
     Dates: start: 19760524
  3. ORPHENADRINE [Suspect]
     Indication: CRYING
     Route: 065
     Dates: start: 19760524
  4. ORPHENADRINE [Suspect]
     Indication: EMOTIONAL DISTRESS
     Route: 065
     Dates: start: 19760524
  5. VILOXAZINE HYDROCHLORIDE [Suspect]
     Indication: CRYING
     Route: 065
     Dates: start: 19760527
  6. VILOXAZINE HYDROCHLORIDE [Suspect]
     Indication: EMOTIONAL DISTRESS
     Route: 065
     Dates: start: 19760527

REACTIONS (4)
  - Schizophrenia, paranoid type [Unknown]
  - Drug withdrawal syndrome [Unknown]
  - Weight increased [Recovering/Resolving]
  - Somnolence [Recovering/Resolving]
